FAERS Safety Report 14499757 (Version 3)
Quarter: 2018Q1

REPORT INFORMATION
  Report Type: Spontaneous
  Country: US (occurrence: US)
  Receive Date: 20180207
  Receipt Date: 20180305
  Transmission Date: 20180509
  Serious: Yes (Other)
  Sender: FDA-Public Use
  Company Number: US-GLAXOSMITHKLINE-US2018020877

PATIENT
  Sex: Female

DRUGS (5)
  1. TAMIFLU [Concomitant]
     Active Substance: OSELTAMIVIR PHOSPHATE
  2. LOSARTAN. [Concomitant]
     Active Substance: LOSARTAN
  3. ZITHROMAX [Concomitant]
     Active Substance: AZITHROMYCIN DIHYDRATE
  4. NUCALA [Suspect]
     Active Substance: MEPOLIZUMAB
     Indication: EOSINOPHIL COUNT ABNORMAL
     Dosage: UNK
     Route: 058
     Dates: start: 201710
  5. BREO ELLIPTA [Concomitant]
     Active Substance: FLUTICASONE FUROATE\VILANTEROL TRIFENATATE

REACTIONS (6)
  - Drug dose omission [Unknown]
  - Pneumonia [Unknown]
  - Influenza [Unknown]
  - Malaise [Unknown]
  - Decreased immune responsiveness [Unknown]
  - Ear infection [Unknown]
